FAERS Safety Report 20630135 (Version 2)
Quarter: 2022Q2

REPORT INFORMATION
  Report Type: Report from Study
  Country: FR (occurrence: FR)
  Receive Date: 20220324
  Receipt Date: 20220502
  Transmission Date: 20220721
  Serious: Yes (Other)
  Sender: FDA-Public Use
  Company Number: FR-AMGEN-FRANI2022048023

PATIENT
  Age: 75 Year
  Sex: Male

DRUGS (4)
  1. AMG-510 [Suspect]
     Active Substance: AMG-510
     Indication: Non-small cell lung cancer metastatic
     Dosage: 960 MILLIGRAM, QD
     Route: 048
     Dates: start: 20220119, end: 20220224
  2. AMG-510 [Suspect]
     Active Substance: AMG-510
     Indication: K-ras gene mutation
     Dosage: 960 MILLIGRAM, QD
     Route: 048
     Dates: start: 20220301, end: 20220311
  3. AMG-510 [Suspect]
     Active Substance: AMG-510
     Dosage: UNK
     Route: 048
     Dates: start: 20220315
  4. AMG-510 [Suspect]
     Active Substance: AMG-510
     Dosage: 480 MILLIGRAM, QD
     Route: 048
     Dates: start: 20220322, end: 20220406

REACTIONS (2)
  - Hepatic cytolysis [Recovering/Resolving]
  - Diarrhoea [Recovered/Resolved]

NARRATIVE: CASE EVENT DATE: 20220224
